FAERS Safety Report 9630690 (Version 1)
Quarter: 2013Q4

REPORT INFORMATION
  Report Type: Spontaneous
  Country: US (occurrence: None)
  Receive Date: 20131016
  Receipt Date: 20131016
  Transmission Date: 20140711
  Serious: Yes (Other)
  Sender: FDA-Public Use
  Company Number: 2013HINLIT0198

PATIENT
  Age: 62 Year
  Sex: Female

DRUGS (5)
  1. LEVETIRACETAM [Suspect]
     Indication: CONVULSION
  2. MEROPENEM (MEROPENEM) [Concomitant]
  3. LEVOTHYROXINE (LEVOTHYROXINE) [Concomitant]
  4. RANITIDINE [Concomitant]
  5. MULTIVITAMINS [Concomitant]

REACTIONS (1)
  - Hepatic enzyme increased [None]
